FAERS Safety Report 4456425-1 (Version None)
Quarter: 2004Q3

REPORT INFORMATION
  Report Type: 
  Country: None (occurrence: None)
  Receive Date: 20040830
  Receipt Date: 20040520
  Transmission Date: 20050211
  Serious: No
  Sender: FDA-Public Use
  Company Number: 206703

PATIENT
  Age: 17 Year
  Sex: Female
  Weight: 57.6 kg

DRUGS (1)
  1. XOLAIR [Suspect]
     Indication: ASTHMA
     Dosage: 2 , SUBCUTANEOUS
     Route: 058
     Dates: start: 20040115, end: 20040115

REACTIONS (2)
  - INJECTION SITE SWELLING [None]
  - RASH [None]
